FAERS Safety Report 10089372 (Version 2)
Quarter: 2014Q2

REPORT INFORMATION
  Report Type: Spontaneous
  Country: BR (occurrence: BR)
  Receive Date: 20140421
  Receipt Date: 20140609
  Transmission Date: 20141212
  Serious: Yes (Other)
  Sender: FDA-Public Use
  Company Number: BR-PFIZER INC-2014109393

PATIENT
  Age: 53 Year
  Sex: Female
  Weight: 64 kg

DRUGS (6)
  1. LYRICA [Suspect]
     Indication: PAIN
     Dosage: 75 MG, 1X/DAY
     Route: 048
     Dates: start: 201307
  2. LYRICA [Suspect]
     Indication: FIBROMYALGIA
  3. ASSERT [Concomitant]
     Indication: DEPRESSION
     Dosage: 50 MG, 1X/DAY IN THE MORNING
     Dates: start: 201312
  4. ARTOGLICO [Concomitant]
  5. VITAMIN D [Concomitant]
  6. SERTRALINE [Concomitant]

REACTIONS (6)
  - Carpal tunnel syndrome [Unknown]
  - Asthenia [Unknown]
  - Pain in extremity [Unknown]
  - Gait disturbance [Unknown]
  - Neuritis [Unknown]
  - Tendonitis [Unknown]
